FAERS Safety Report 7322478-6 (Version None)
Quarter: 2011Q1

REPORT INFORMATION
  Report Type: 
  Country: None (occurrence: None)
  Receive Date: 20110125
  Receipt Date: 20101202
  Transmission Date: 20110831
  Serious: No
  Sender: FDA-Public Use
  Company Number: US-004304

PATIENT
  Sex: Male
  Weight: 83.0083 kg

DRUGS (11)
  1. FENOFIBRATE [Concomitant]
  2. ADVAIR [Concomitant]
  3. TYLENOL (CAPLET) [Concomitant]
  4. COLESTIPOL HYDROCHLORIDE [Concomitant]
  5. SIMVASTATIN [Concomitant]
  6. ALEVE [Concomitant]
  7. ASPIRIN [Concomitant]
  8. FIRMAGON [Suspect]
     Indication: PROSTATE CANCER
     Dosage: (SUBCUTANEOUS) (80 MG 1X/MONTH SUBCUTANEOUS)
     Route: 058
     Dates: start: 20100101
  9. FIRMAGON [Suspect]
     Indication: PROSTATE CANCER
     Dosage: (SUBCUTANEOUS) (80 MG 1X/MONTH SUBCUTANEOUS)
     Route: 058
     Dates: start: 20100924, end: 20100924
  10. NIACIN [Concomitant]
  11. BENAZEPRIL [Concomitant]

REACTIONS (1)
  - INJECTION SITE PAIN [None]
